FAERS Safety Report 18445171 (Version 7)
Quarter: 2023Q1

REPORT INFORMATION
  Report Type: Spontaneous
  Country: US (occurrence: US)
  Receive Date: 20201030
  Receipt Date: 20230329
  Transmission Date: 20230417
  Serious: No
  Sender: FDA-Public Use
  Company Number: US-PFIZER INC-2020410129

PATIENT
  Age: 12 Year
  Sex: Male
  Weight: 43.09 kg

DRUGS (2)
  1. GENOTROPIN [Suspect]
     Active Substance: SOMATROPIN
     Dosage: 1 MG, DAILY
  2. GENOTROPIN [Suspect]
     Active Substance: SOMATROPIN
     Dosage: 1.2 MG, DAILY

REACTIONS (6)
  - Device mechanical issue [Unknown]
  - Device breakage [Unknown]
  - Device leakage [Unknown]
  - Device use issue [Unknown]
  - Device power source issue [Unknown]
  - Drug dose omission by device [Unknown]
